FAERS Safety Report 5858768-3 (Version None)
Quarter: 2008Q3

REPORT INFORMATION
  Report Type: 
  Country: None (occurrence: None)
  Receive Date: 20080825
  Receipt Date: 20080813
  Transmission Date: 20090109
  Serious: Yes (Other)
  Sender: FDA-Public Use
  Company Number: 2008US000435

PATIENT
  Age: 46 Year
  Sex: Male
  Weight: 78.5 kg

DRUGS (13)
  1. AMBISOME [Suspect]
     Indication: ZYGOMYCOSIS
     Dosage: 380 MG, UID/QD, IV NOS
     Route: 042
     Dates: start: 20080129, end: 20080206
  2. VANCOMYCIN HYDROCHLORIDE [Concomitant]
  3. ACETAMINOPHEN [Concomitant]
  4. ACYCLOVIR (ACICLOVIR SODIUM) [Concomitant]
  5. AMPICILLIN (AMPICILLIN POTASSIUM) [Concomitant]
  6. BISACODYL (BISACODYL) [Concomitant]
  7. CETAZIDIME (CETAZIDIME) [Concomitant]
  8. CLONIDINE (CLONIDINE HYDROCHLORIDE) [Concomitant]
  9. DOCUSATE SODIUM (DOCUSATE SODIUM) [Concomitant]
  10. DOPAMINE HCL [Concomitant]
  11. ADVIR (FLUTICASONE PROPIONATE, SALMETEROL XINAFOATE) [Concomitant]
  12. LANTUS [Concomitant]
  13. LEVOFLOXACIN [Concomitant]

REACTIONS (1)
  - DEAFNESS NEUROSENSORY [None]
